FAERS Safety Report 9784016 (Version 2)
Quarter: 2014Q1

REPORT INFORMATION
  Report Type: Spontaneous
  Country: CH (occurrence: CH)
  Receive Date: 20131226
  Receipt Date: 20140123
  Transmission Date: 20141002
  Serious: Yes (Hospitalization)
  Sender: FDA-Public Use
  Company Number: CH-TEVA-452115ISR

PATIENT
  Age: 63 Year
  Sex: Male

DRUGS (7)
  1. IRFEN [Suspect]
     Indication: PAIN
     Route: 048
     Dates: start: 20130927, end: 20130928
  2. AUGMENTIN [Suspect]
     Indication: WOUND
     Dosage: 2000 MILLIGRAM DAILY;
     Route: 048
     Dates: start: 20130927, end: 20130930
  3. ASPIRINE [Suspect]
     Indication: ARTERIAL THROMBOSIS
     Dosage: 100 MILLIGRAM DAILY;
     Route: 048
     Dates: start: 20130927, end: 20131003
  4. T-D PUR [Suspect]
     Indication: PROPHYLAXIS
     Dosage: .5 ML DAILY;
     Route: 030
     Dates: start: 20130927, end: 20130927
  5. RAPIDOCAIN [Suspect]
     Indication: ANAESTHESIA
     Dosage: ADMINISTERED DOSE NOT SPECIFIED
     Route: 058
     Dates: start: 20130927, end: 20130927
  6. BETADINE [Concomitant]
     Dosage: USED FOR WOUND RINSING
     Route: 065
     Dates: start: 20130927
  7. DAFALGAN [Concomitant]
     Indication: PYREXIA
     Dosage: IN RESERVE, DRUG REGIMEN NOT SPECIFIED
     Route: 048
     Dates: start: 20131004

REACTIONS (17)
  - Drug reaction with eosinophilia and systemic symptoms [Recovered/Resolved]
  - Rash erythematous [Recovered/Resolved]
  - Skin exfoliation [Recovering/Resolving]
  - Dermatitis [Recovered/Resolved]
  - Pyrexia [Recovered/Resolved]
  - Leukocytosis [Unknown]
  - C-reactive protein increased [Unknown]
  - Red blood cell sedimentation rate increased [Unknown]
  - Eosinophilia [Unknown]
  - Anaemia [Unknown]
  - Creatinine renal clearance decreased [Unknown]
  - Albuminuria [Unknown]
  - Nausea [Unknown]
  - Chills [Unknown]
  - Hyperhidrosis [Unknown]
  - Renal failure acute [Unknown]
  - Erythema [Unknown]
